FAERS Safety Report 5009052-1 (Version None)
Quarter: 2006Q2

REPORT INFORMATION
  Report Type: 
  Country: None (occurrence: None)
  Receive Date: 20060404
  Receipt Date: 20051110
  Transmission Date: 20061013
  Serious: No
  Sender: FDA-Public Use
  Company Number: US200511000821

PATIENT
  Age: 45 Year
  Sex: Male

DRUGS (4)
  1. SYMBYAX [Suspect]
     Indication: BIPOLAR I DISORDER
     Dosage: 6MG/25MGMG
  2. CYMBALTA [Suspect]
  3. ZYPREXA [Suspect]
  4. ALPRAZOLAM [Concomitant]

REACTIONS (3)
  - DRUG INEFFECTIVE [None]
  - SOMNOLENCE [None]
  - WEIGHT INCREASED [None]
